FAERS Safety Report 5644178-0 (Version None)
Quarter: 2008Q1

REPORT INFORMATION
  Report Type: 
  Country: None (occurrence: None)
  Receive Date: 20080227
  Receipt Date: 20080227
  Transmission Date: 20080703
  Serious: Yes (Other)
  Sender: FDA-Public Use
  Company Number: None

PATIENT
  Sex: Female
  Weight: 83.9154 kg

DRUGS (1)
  1. CYMBALTA [Suspect]
     Dosage: 120 MG ONCE DAILY PO
     Route: 048
     Dates: start: 20070301, end: 20080119

REACTIONS (5)
  - DISTURBANCE IN ATTENTION [None]
  - IMPAIRED WORK ABILITY [None]
  - IRRITABILITY [None]
  - MOOD SWINGS [None]
  - PARAESTHESIA [None]
